FAERS Safety Report 9048987 (Version 1)
Quarter: 2013Q1

REPORT INFORMATION
  Report Type: Spontaneous
  Country: MX (occurrence: None)
  Receive Date: 20130117
  Receipt Date: 20130208
  Transmission Date: 20140127
  Serious: Yes (Other)
  Sender: FDA-Public Use
  Company Number: ENTC2013-0017

PATIENT
  Age: 65 Year
  Sex: Female

DRUGS (5)
  1. STALEVO (LEVODOPA, CARBIDOPA, ENTACAPONE) [Suspect]
     Indication: PARKINSON^S DISEASE
     Dosage: 2 DF DAILY; STRENGTH: 150/37.5/200 MG
     Route: 048
     Dates: start: 200910
  2. INSOGEN PLUS [Concomitant]
  3. BEKUNIS [Concomitant]
  4. BEDOYECTA [Concomitant]
  5. ANAPSIQUE [Concomitant]

REACTIONS (9)
  - Incorrect dose administered [None]
  - Dysphagia [None]
  - Near drowning [None]
  - Syncope [None]
  - Blood pressure decreased [None]
  - Headache [None]
  - Parkinson^s disease [None]
  - Disease progression [None]
  - Choking sensation [None]
